FAERS Safety Report 5343857-2 (Version None)
Quarter: 2007Q2

REPORT INFORMATION
  Report Type: 
  Country: None (occurrence: None)
  Receive Date: 20070416
  Receipt Date: 20070115
  Transmission Date: 20071010
  Serious: No
  Sender: FDA-Public Use
  Company Number: 2007SP000170

PATIENT
  Age: 24 Year
  Sex: Female
  Weight: 56.6996 kg

DRUGS (3)
  1. LUNESTA [Suspect]
     Indication: INSOMNIA
     Dosage: 2 MG;1X;ORAL
     Route: 048
     Dates: start: 20070108, end: 20070108
  2. CYMBALTA [Concomitant]
  3. TRAMADOL HCL [Concomitant]

REACTIONS (2)
  - HALLUCINATION, TACTILE [None]
  - INSOMNIA [None]
